FAERS Safety Report 9377486 (Version 2)
Quarter: 2013Q3

REPORT INFORMATION
  Report Type: Spontaneous
  Country: US (occurrence: US)
  Receive Date: 20130701
  Receipt Date: 20130726
  Transmission Date: 20140515
  Serious: Yes (Hospitalization)
  Sender: FDA-Public Use
  Company Number: US-BIOGENIDEC-2013BI055412

PATIENT
  Age: 76 Year
  Sex: Male
  Weight: 79 kg

DRUGS (18)
  1. TYSABRI [Suspect]
     Indication: MULTIPLE SCLEROSIS
     Route: 042
     Dates: start: 20110104, end: 20110623
  2. TYSABRI [Suspect]
     Indication: MULTIPLE SCLEROSIS
     Route: 042
     Dates: start: 20110915, end: 20130416
  3. TECFIDERA [Concomitant]
     Dates: start: 201304, end: 201306
  4. TECFIDERA [Concomitant]
     Dates: start: 201306
  5. XANAX [Concomitant]
  6. VITAMIN C [Concomitant]
  7. ASPIRIN [Concomitant]
  8. VITAMIN D3 [Concomitant]
  9. CRANBERRY [Concomitant]
  10. ARICEPT [Concomitant]
  11. LAMOTRIGIN [Concomitant]
  12. NAMENDA [Concomitant]
  13. MIDODRINE [Concomitant]
  14. PROVIGIL [Concomitant]
  15. SEROQUEL [Concomitant]
  16. SIMVASTATIN [Concomitant]
  17. TRIMETHOPRIM [Concomitant]
  18. VESICARE [Concomitant]

REACTIONS (1)
  - No adverse event [Unknown]
